FAERS Safety Report 18657337 (Version 2)
Quarter: 2021Q1

REPORT INFORMATION
  Report Type: Report from Study
  Country: KR (occurrence: KR)
  Receive Date: 20201224
  Receipt Date: 20210107
  Transmission Date: 20210419
  Serious: Yes (Hospitalization)
  Sender: FDA-Public Use
  Company Number: KR-ROCHE-2738897

PATIENT
  Age: 70 Year
  Sex: Male
  Weight: 53.6 kg

DRUGS (30)
  1. DENOGAN [Concomitant]
     Active Substance: PROPACETAMOL HYDROCHLORIDE
  2. ATEZOLIZUMAB. [Suspect]
     Active Substance: ATEZOLIZUMAB
     Indication: LUNG NEOPLASM MALIGNANT
     Dosage: ON 11/DEC/2020, RECEIVED LAST DOSE OF ATEZOLIZUMAB PRIOR TO ADVERSE EVENT.
     Route: 042
     Dates: start: 20200928
  3. CARBOPLATIN. [Suspect]
     Active Substance: CARBOPLATIN
     Indication: LUNG NEOPLASM MALIGNANT
     Dosage: ON 11/DEC/2020, RECEIVED LAST DOSE OF CARBOPATIN PRIOR TO ADVERSE EVENT.
     Route: 042
     Dates: start: 20200928
  4. NORMAL SALINE [Concomitant]
     Active Substance: SODIUM CHLORIDE
     Dates: start: 20201219, end: 20210101
  5. TRIDOL [Concomitant]
     Active Substance: TRAMADOL HYDROCHLORIDE
  6. THRUPAS [Concomitant]
     Active Substance: SILODOSIN
  7. JANUVIA [Concomitant]
     Active Substance: SITAGLIPTIN PHOSPHATE
  8. POTASSIUM CHLORIDE. [Concomitant]
     Active Substance: POTASSIUM CHLORIDE
     Dates: start: 20201221, end: 20201228
  9. WINUF PERI [Concomitant]
     Active Substance: AMINO ACIDS\DEXTROSE\ELECTROLYTES NOS\SOYBEAN OIL\VITAMINS
     Dates: start: 20210103
  10. QUETAPIN [Concomitant]
     Dosage: 1 TAB
     Dates: start: 20210101
  11. NORVASC [Concomitant]
     Active Substance: AMLODIPINE BESYLATE
  12. FRAGMIN [Concomitant]
     Active Substance: DALTEPARIN SODIUM
  13. SEROQUEL [Concomitant]
     Active Substance: QUETIAPINE FUMARATE
     Dates: start: 20201221, end: 20201231
  14. FOTAGEL [Concomitant]
     Dates: start: 20201224
  15. MEGACE F [Concomitant]
     Dates: start: 20201226
  16. NORMAL SALINE [Concomitant]
     Active Substance: SODIUM CHLORIDE
     Dates: start: 20201219
  17. HARNAL [Concomitant]
     Active Substance: TAMSULOSIN HYDROCHLORIDE
  18. MAGO (SOUTH KOREA) [Concomitant]
     Dosage: 1 CAP
     Dates: start: 20201229
  19. PACLITAXEL. [Suspect]
     Active Substance: PACLITAXEL
     Indication: LUNG NEOPLASM MALIGNANT
     Dosage: ON 11/DEC/2020, RECEIVED LAST DOSE OF PACLITAXEL PRIOR TO ADVERSE EVENT.
     Route: 042
     Dates: start: 20200928
  20. HUMULIN R [Concomitant]
     Active Substance: INSULIN HUMAN
     Dates: start: 20201221, end: 20201222
  21. DEXTROSE. [Concomitant]
     Active Substance: DEXTROSE
     Dates: start: 20201218, end: 20201229
  22. DUPHALAC EASY [Concomitant]
     Active Substance: LACTULOSE
  23. BEVACIZUMAB. [Suspect]
     Active Substance: BEVACIZUMAB
     Indication: LUNG NEOPLASM MALIGNANT
     Dosage: ON 11/DEC/2020, RECEIVED LAST DOSE OF BEVACIZUMAB PRIOR TO ADVERSE EVENT.
     Route: 042
     Dates: start: 20200928
  24. TAZOPERAN [Concomitant]
     Dates: start: 20201222, end: 20201229
  25. LANSTON LFDT [Concomitant]
     Active Substance: LANSOPRAZOLE
     Dates: start: 20201224
  26. NAK200 [Concomitant]
     Dates: start: 20201223, end: 20201223
  27. HEXAMEDINE [Concomitant]
     Dates: start: 20201219, end: 20201228
  28. ZOYLEX [Concomitant]
     Dates: start: 20201219, end: 20210101
  29. DUROGESIC D TRANS [Concomitant]
     Active Substance: FENTANYL
  30. GLUPA [Concomitant]
     Active Substance: METFORMIN HYDROCHLORIDE

REACTIONS (1)
  - Pulmonary embolism [Recovering/Resolving]

NARRATIVE: CASE EVENT DATE: 20201220
